FAERS Safety Report 10590755 (Version 1)
Quarter: 2014Q4

REPORT INFORMATION
  Report Type: Spontaneous
  Country: DE (occurrence: DE)
  Receive Date: 20141118
  Receipt Date: 20141118
  Transmission Date: 20150529
  Serious: Yes (Hospitalization)
  Sender: FDA-Public Use
  Company Number: DE-BRISTOL-MYERS SQUIBB COMPANY-21586409

PATIENT
  Age: 91 Year
  Sex: Male

DRUGS (1)
  1. ELIQUIS [Suspect]
     Active Substance: APIXABAN

REACTIONS (5)
  - Weight decreased [Unknown]
  - Melaena [Unknown]
  - Dysphagia [Unknown]
  - Duodenal ulcer [Unknown]
  - Skin ulcer [Unknown]

NARRATIVE: CASE EVENT DATE: 20140916
